FAERS Safety Report 4264214-6 (Version None)
Quarter: 2004Q1

REPORT INFORMATION
  Report Type: 
  Country: None (occurrence: None)
  Receive Date: 20040102
  Receipt Date: 20031224
  Transmission Date: 20041129
  Serious: Yes (Other)
  Sender: FDA-Public Use
  Company Number: NSADSS2002046474

PATIENT
  Age: 74 Year
  Sex: Male
  Weight: 86.1834 kg

DRUGS (7)
  1. REMICADE [Suspect]
     Indication: RHEUMATOID ARTHRITIS
     Dosage: 1 IN 1 AS NECESSARY, INTRAVENOUS DRIP
     Route: 041
  2. METHOTREXATE [Concomitant]
  3. SECTROL (ACEBUTOLOL HYDROCHLORIDE) [Concomitant]
  4. NORVASC [Concomitant]
  5. HYDROCORTISONE [Concomitant]
  6. PREDNISONE [Concomitant]
  7. PLAQUENIL [Concomitant]

REACTIONS (3)
  - COUGH [None]
  - PULMONARY MASS [None]
  - UPPER RESPIRATORY TRACT INFECTION [None]
